FAERS Safety Report 11615759 (Version 1)
Quarter: 2015Q4

REPORT INFORMATION
  Report Type: Report from Study
  Country: BR (occurrence: BR)
  Receive Date: 20151009
  Receipt Date: 20151009
  Transmission Date: 20160304
  Serious: Yes (Other)
  Sender: FDA-Public Use
  Company Number: BR-ABBVIE-15K-020-1476395-00

PATIENT
  Sex: Male
  Weight: 105 kg

DRUGS (2)
  1. HUMIRA [Suspect]
     Active Substance: ADALIMUMAB
     Route: 058
     Dates: end: 20150827
  2. HUMIRA [Suspect]
     Active Substance: ADALIMUMAB
     Indication: PSORIASIS
     Dosage: LOADING DOSE
     Route: 058
     Dates: start: 201111, end: 201111

REACTIONS (4)
  - Platelet count decreased [Unknown]
  - Apnoea [Recovering/Resolving]
  - Sleep disorder [Recovering/Resolving]
  - Nasal septum deviation [Recovering/Resolving]

NARRATIVE: CASE EVENT DATE: 2013
